FAERS Safety Report 6252104-9 (Version None)
Quarter: 2009Q2

REPORT INFORMATION
  Report Type: 
  Country: None (occurrence: None)
  Receive Date: 20090630
  Receipt Date: 20060130
  Transmission Date: 20091009
  Serious: Yes (Hospitalization)
  Sender: FDA-Public Use
  Company Number: US-ROCHE-639048

PATIENT
  Sex: Male

DRUGS (15)
  1. ENFUVIRTIDE [Suspect]
     Indication: HIV INFECTION
     Route: 065
     Dates: start: 20030317, end: 20040401
  2. ENFUVIRTIDE [Suspect]
     Route: 065
     Dates: start: 20051001, end: 20060801
  3. BACTRIM [Concomitant]
     Dosage: FREQ: QD
     Dates: start: 20030317, end: 20030101
  4. CIPRO [Concomitant]
     Dosage: FREQ: QD; STOP DATE: UNK/UNK/2003
     Dates: start: 20030801
  5. LEVAQUIN [Concomitant]
     Dosage: FREQ: QD
     Dates: start: 20050601, end: 20050101
  6. AGENERASE [Concomitant]
     Dates: start: 20030101, end: 20071210
  7. EPIVIR [Concomitant]
     Dosage: FREQ: QD
     Dates: start: 20030317, end: 20041001
  8. REYATAZ [Concomitant]
     Dosage: FREQ: QD
     Dates: start: 20030317, end: 20050301
  9. VIDEX [Concomitant]
     Dosage: FREQ: QD
     Dates: start: 20030317, end: 20050301
  10. VIREAD [Concomitant]
     Dosage: FREQ: QD
     Dates: start: 20030317, end: 20050301
  11. KALETRA [Concomitant]
     Dates: start: 20030501, end: 20050301
  12. LEXIVA [Concomitant]
     Dates: start: 20040101, end: 20050101
  13. TRUVADA [Concomitant]
     Dosage: FREQ: QD
     Dates: start: 20041001, end: 20071210
  14. APTIVUS [Concomitant]
     Dates: start: 20051001, end: 20071210
  15. NORVIR [Concomitant]
     Dosage: FREQ: QD
     Dates: start: 20051001, end: 20071210

REACTIONS (1)
  - VOCAL CORD DISORDER [None]
